FAERS Safety Report 13338718 (Version 1)
Quarter: 2017Q1

REPORT INFORMATION
  Report Type: Report from Study
  Country: CA (occurrence: CA)
  Receive Date: 20170315
  Receipt Date: 20170315
  Transmission Date: 20170428
  Serious: Yes (Other)
  Sender: FDA-Public Use
  Company Number: CA-JNJFOC-20170311023

PATIENT
  Age: 64 Year
  Sex: Male
  Weight: 56.7 kg

DRUGS (1)
  1. STELARA [Suspect]
     Active Substance: USTEKINUMAB
     Indication: PSORIASIS
     Route: 058
     Dates: start: 20150512, end: 20170126

REACTIONS (3)
  - Off label use [Unknown]
  - Pharyngeal cancer metastatic [Unknown]
  - Product use issue [Unknown]

NARRATIVE: CASE EVENT DATE: 20150512
